FAERS Safety Report 14385066 (Version 1)
Quarter: 2018Q1

REPORT INFORMATION
  Report Type: Spontaneous
  Country: US (occurrence: US)
  Receive Date: 20180115
  Receipt Date: 20180115
  Transmission Date: 20180509
  Serious: Yes (Hospitalization, Other)
  Sender: FDA-Public Use
  Company Number: US-AXELLIA-001301

PATIENT
  Age: 88 Year
  Sex: Male

DRUGS (4)
  1. MEROPENEM. [Concomitant]
     Active Substance: MEROPENEM
     Indication: POST PROCEDURAL FEVER
  2. VANCOMYCIN [Suspect]
     Active Substance: VANCOMYCIN
     Indication: POST PROCEDURAL FEVER
  3. LEVOFLOXACIN/LEVOFLOXACIN MESYLATE [Concomitant]
     Indication: POST PROCEDURAL FEVER
     Route: 048
  4. PIPERACILLIN/TAZOBACTAM [Concomitant]
     Indication: POST PROCEDURAL FEVER

REACTIONS (3)
  - Drug hypersensitivity [Recovered/Resolved]
  - Linear IgA disease [Recovered/Resolved]
  - Off label use [Unknown]
